FAERS Safety Report 21926444 (Version 1)
Quarter: 2023Q1

REPORT INFORMATION
  Report Type: Spontaneous
  Country: US (occurrence: None)
  Receive Date: 20230127
  Receipt Date: 20230127
  Transmission Date: 20230418
  Serious: No
  Sender: FDA-Public Use
  Company Number: None

PATIENT
  Age: 72 Year
  Sex: Female
  Weight: 39.55 kg

DRUGS (13)
  1. IBRANCE [Suspect]
     Active Substance: PALBOCICLIB
     Indication: Breast cancer female
     Dosage: 100MG 21D OF 28DAYS ORAL?
     Route: 048
  2. ACETAMINOPHEN-CODEINE#3 [Concomitant]
  3. ATORVASTATIN [Concomitant]
     Active Substance: ATORVASTATIN
  4. CALCIUM 600 + D3 [Concomitant]
  5. CYANOCOBALAMIN [Concomitant]
  6. DOCUSATE SODIUM [Concomitant]
     Active Substance: DOCUSATE SODIUM
  7. GABAPENTIN [Concomitant]
     Active Substance: GABAPENTIN
  8. LETROZOLE [Concomitant]
     Active Substance: LETROZOLE
  9. ONDANSETRON [Concomitant]
     Active Substance: ONDANSETRON
  10. PROTONIX [Concomitant]
     Active Substance: PANTOPRAZOLE SODIUM
  11. VERZENIO [Concomitant]
     Active Substance: ABEMACICLIB
  12. VITAMIN B12 [Concomitant]
     Active Substance: CYANOCOBALAMIN
  13. ZOLEDRONIC ACID [Concomitant]
     Active Substance: ZOLEDRONIC ACID

REACTIONS (2)
  - Malignant neoplasm progression [None]
  - Breast cancer female [None]
